FAERS Safety Report 9128247 (Version 1)
Quarter: 2013Q1

REPORT INFORMATION
  Report Type: Spontaneous
  Country: FR (occurrence: FR)
  Receive Date: 20130228
  Receipt Date: 20130228
  Transmission Date: 20140127
  Serious: Yes (Other)
  Sender: FDA-Public Use
  Company Number: FR-009507513-1302FRA008612

PATIENT
  Age: 31 Year
  Sex: Female

DRUGS (9)
  1. PUREGON [Suspect]
     Indication: IN VITRO FERTILISATION
     Dosage: UNK
     Route: 065
     Dates: start: 20130104, end: 20130112
  2. ORGALUTRAN [Suspect]
     Dosage: UNK
     Route: 058
     Dates: start: 20130104, end: 20130112
  3. GONADOTROPHIN, CHORIONIC [Suspect]
     Dosage: UNK
     Route: 030
     Dates: start: 20130112, end: 20130112
  4. XANAX [Suspect]
     Dosage: UNK
     Route: 048
     Dates: start: 20130114, end: 20130114
  5. PROGESTERONE [Suspect]
     Dosage: UNK
     Route: 048
     Dates: start: 20130114, end: 20130115
  6. ATARAX (HYDROXYZINE HYDROCHLORIDE) [Suspect]
     Dosage: UNK
     Route: 048
     Dates: start: 20130114, end: 20130114
  7. PETHIDINE [Suspect]
     Dosage: UNK
     Route: 065
     Dates: start: 20130114, end: 20130114
  8. ATROPINE [Suspect]
     Dosage: UNK
     Route: 065
     Dates: start: 20130114, end: 20130114
  9. PROFENID [Suspect]
     Dosage: UNK
     Route: 054
     Dates: start: 20130114, end: 20130114

REACTIONS (1)
  - Acute generalised exanthematous pustulosis [Recovered/Resolved]
